FAERS Safety Report 7516655-9 (Version None)
Quarter: 2011Q2

REPORT INFORMATION
  Report Type: 
  Country: None (occurrence: None)
  Receive Date: 20110601
  Receipt Date: 20110523
  Transmission Date: 20111010
  Serious: Yes (Hospitalization, Other)
  Sender: FDA-Public Use
  Company Number: US-ABBOTT-11P-163-0728402-00

PATIENT
  Sex: Female
  Weight: 51.302 kg

DRUGS (22)
  1. ZYRTEC [Concomitant]
     Indication: HYPERSENSITIVITY
  2. SENOKOT [Concomitant]
     Indication: PRODUCT USED FOR UNKNOWN INDICATION
  3. FIORICET [Concomitant]
     Indication: PRODUCT USED FOR UNKNOWN INDICATION
  4. DILAUDID [Concomitant]
     Indication: POSTOPERATIVE ANALGESIA
  5. MIRALAX [Concomitant]
     Indication: PRODUCT USED FOR UNKNOWN INDICATION
  6. MULTI-VITAMIN [Concomitant]
     Indication: PRODUCT USED FOR UNKNOWN INDICATION
  7. VENTALIN [Concomitant]
     Indication: ASTHMA
  8. LUPRON DEPOT [Suspect]
     Indication: ENDOMETRIOSIS
     Dosage: 2 INJECTIONS
     Route: 050
     Dates: start: 20100201, end: 20100701
  9. SINGULAIR [Concomitant]
     Indication: HYPERSENSITIVITY
  10. TRANSDERM PATCH [Concomitant]
     Indication: PRODUCT USED FOR UNKNOWN INDICATION
  11. VICODIN [Concomitant]
     Indication: POSTOPERATIVE ANALGESIA
  12. CYMBALTA [Concomitant]
     Indication: ANXIETY
  13. ATIVAN [Concomitant]
     Indication: ANXIETY
  14. REGLAN [Concomitant]
     Indication: PRODUCT USED FOR UNKNOWN INDICATION
  15. MILK OF MAGNESIA TAB [Concomitant]
     Indication: PRODUCT USED FOR UNKNOWN INDICATION
  16. VITAMIN B-12 [Concomitant]
     Indication: PRODUCT USED FOR UNKNOWN INDICATION
  17. VITAMIN D [Concomitant]
     Indication: PRODUCT USED FOR UNKNOWN INDICATION
  18. CALCIUM CARBONATE [Concomitant]
     Indication: PRODUCT USED FOR UNKNOWN INDICATION
  19. PROTONIX [Concomitant]
     Indication: PRODUCT USED FOR UNKNOWN INDICATION
  20. ADVAIR DISKUS 100/50 [Concomitant]
     Indication: HYPERSENSITIVITY
  21. LUPRON DEPOT [Suspect]
     Route: 058
     Dates: start: 20110201
  22. ADVAIR DISKUS 100/50 [Concomitant]
     Indication: ASTHMA

REACTIONS (8)
  - INTUSSUSCEPTION [None]
  - APPENDICECTOMY [None]
  - ABDOMINAL PAIN [None]
  - BLOOD ALBUMIN DECREASED [None]
  - INTESTINAL OBSTRUCTION [None]
  - GASTRIC INFECTION [None]
  - GASTRIC BYPASS [None]
  - MALNUTRITION [None]
